FAERS Safety Report 11639997 (Version 2)
Quarter: 2015Q4

REPORT INFORMATION
  Report Type: Spontaneous
  Country: US (occurrence: US)
  Receive Date: 20151019
  Receipt Date: 20151223
  Transmission Date: 20160304
  Serious: Yes (Hospitalization)
  Sender: FDA-Public Use
  Company Number: US-PFIZER INC-2015334148

PATIENT
  Age: 87 Year
  Sex: Male
  Weight: 72 kg

DRUGS (13)
  1. OXYCODONE [Concomitant]
     Active Substance: OXYCODONE
     Dosage: 10 MG, DAILY 2 TABLETS A DAY
  2. ASPIRIN. [Concomitant]
     Active Substance: ASPIRIN
     Indication: CARDIAC DISORDER
     Dosage: 81 MG, DAILY
  3. PEPCID AC [Concomitant]
     Active Substance: FAMOTIDINE
     Indication: GASTROOESOPHAGEAL REFLUX DISEASE
     Dosage: 10 MG, DAILY, BEFORE BREAKFAST
  4. CLONAZEPAM. [Concomitant]
     Active Substance: CLONAZEPAM
     Indication: SLEEP DISORDER
     Dosage: 0.25 MG (0.5 MG, HALF TABLET) AT BEDTIME
  5. TIMOLOL. [Concomitant]
     Active Substance: TIMOLOL
     Indication: GLAUCOMA
     Dosage: 1 DROP IN EACH EYE TWICE DAILY
  6. LATANOPROST. [Concomitant]
     Active Substance: LATANOPROST
     Indication: GLAUCOMA
     Dosage: 1 DROP IN EACH EYE AT BEDTIME
  7. INLYTA [Suspect]
     Active Substance: AXITINIB
     Indication: METASTATIC NEOPLASM
     Dosage: 5 MG, ONE IN MORNING AND ONE AT NIGHT FOR ALL 7DAYS
     Route: 048
     Dates: start: 20150501, end: 20151001
  8. CENTRUM SILVER MULTIVITAMIN [Concomitant]
     Dosage: 1 TABLET DAILY WITH FOOD
  9. OXYCODONE [Concomitant]
     Active Substance: OXYCODONE
     Indication: PAIN
     Dosage: 5 MG, 1 TABLET EVERY 6 HOURS AS NEEDED
  10. VITAMIN D3 [Concomitant]
     Active Substance: CHOLECALCIFEROL
     Dosage: 1000 IU, DAILY
  11. LEVOTHYROXINE. [Concomitant]
     Active Substance: LEVOTHYROXINE
     Indication: THYROID DISORDER
     Dosage: 0.050 MG, DAILY
  12. TAMSULOSIN [Concomitant]
     Active Substance: TAMSULOSIN
     Indication: PROSTATIC DISORDER
     Dosage: 0.4 MG, DAILY WITH DINNER
  13. MYRBETRIQ [Concomitant]
     Active Substance: MIRABEGRON
     Indication: PROSTATIC DISORDER
     Dosage: 25 MG, DAILY 1 TABLET DAILY

REACTIONS (4)
  - Fatigue [Recovered/Resolved]
  - Diarrhoea [Not Recovered/Not Resolved]
  - Condition aggravated [Not Recovered/Not Resolved]
  - Hypoacusis [Not Recovered/Not Resolved]

NARRATIVE: CASE EVENT DATE: 201505
